FAERS Safety Report 4284664-1 (Version None)
Quarter: 2004Q1

REPORT INFORMATION
  Report Type: 
  Country: None (occurrence: None)
  Receive Date: 20040203
  Receipt Date: 20040115
  Transmission Date: 20041129
  Serious: Yes (Death, Other)
  Sender: FDA-Public Use
  Company Number: WAES 0401USA01166

PATIENT
  Age: 61 Year
  Sex: Male

DRUGS (4)
  1. ANTINEOPLASTIC (UNSPECIFIED) [Concomitant]
  2. EMEND [Suspect]
     Indication: PROPHYLAXIS OF NAUSEA AND VOMITING
     Route: 048
  3. DEXAMETHASONE [Concomitant]
  4. TAXOTERE [Concomitant]

REACTIONS (3)
  - ACUTE PSYCHOSIS [None]
  - CEREBRAL INFARCTION [None]
  - NON-SMALL CELL LUNG CANCER METASTATIC [None]
